FAERS Safety Report 16969993 (Version 1)
Quarter: 2019Q4

REPORT INFORMATION
  Report Type: Spontaneous
  Country: US (occurrence: US)
  Receive Date: 20191029
  Receipt Date: 20191029
  Transmission Date: 20200122
  Serious: Yes (Other)
  Sender: FDA-Public Use
  Company Number: US-ASSERTIO THERAPEUTICS, INC.-US-2019DEP001145

PATIENT
  Age: 52 Year
  Sex: Female
  Weight: 78.5 kg

DRUGS (1)
  1. GRALISE [Suspect]
     Active Substance: GABAPENTIN
     Indication: THORACIC OUTLET SYNDROME
     Dosage: 600 MG, QD
     Dates: start: 201910

REACTIONS (4)
  - Product use in unapproved indication [Unknown]
  - Off label use [Unknown]
  - Nerve injury [Not Recovered/Not Resolved]
  - Procedural complication [Not Recovered/Not Resolved]
